FAERS Safety Report 5196756-3 (Version None)
Quarter: 2006Q4

REPORT INFORMATION
  Report Type: 
  Country: None (occurrence: None)
  Receive Date: 20061227
  Receipt Date: 20061210
  Transmission Date: 20070319
  Serious: Yes (Other)
  Sender: FDA-Public Use
  Company Number: 2006153126

PATIENT
  Sex: Male

DRUGS (6)
  1. CHANTIX [Suspect]
     Indication: SMOKING CESSATION THERAPY
     Dosage: 1 MG (1 MG, 1 IN 1 D), ORAL
     Route: 048
     Dates: start: 20061209
  2. RED YEAST RICE (RED YEAST RICE) [Concomitant]
  3. FISH OIL (FISH OIL) [Concomitant]
  4. CINNAMON (CINNAMON) [Concomitant]
  5. SAW PALMETTO (SAW PALMETTO) [Concomitant]
  6. KLONOPIN [Concomitant]

REACTIONS (4)
  - ERYTHEMA [None]
  - HEADACHE [None]
  - NAUSEA [None]
  - PALATAL OEDEMA [None]
